FAERS Safety Report 4411893-6 (Version None)
Quarter: 2004Q3

REPORT INFORMATION
  Report Type: 
  Country: None (occurrence: None)
  Receive Date: 20040730
  Receipt Date: 20030915
  Transmission Date: 20050211
  Serious: No
  Sender: FDA-Public Use
  Company Number: US-GLAXOSMITHKLINE-A0425932A

PATIENT
  Sex: Male

DRUGS (3)
  1. ZANTAC [Suspect]
     Dosage: 150MG TWICE PER DAY
     Route: 048
  2. MULTIVITAMIN [Concomitant]
  3. DIURETIC [Concomitant]

REACTIONS (2)
  - DRUG INEFFECTIVE [None]
  - MEDICATION ERROR [None]
